FAERS Safety Report 4530744-2 (Version None)
Quarter: 2004Q4

REPORT INFORMATION
  Report Type: 
  Country: None (occurrence: None)
  Receive Date: 20041216
  Receipt Date: 20041201
  Transmission Date: 20050328
  Serious: Yes (Hospitalization, Other)
  Sender: FDA-Public Use
  Company Number: PHNU2004DE02931

PATIENT
  Age: 93 Year
  Sex: Male
  Weight: 66.9963 kg

DRUGS (1)
  1. VISUDYNE [Suspect]
     Indication: MACULAR DEGENERATION
     Dates: start: 20040715, end: 20040715

REACTIONS (18)
  - DERMATITIS BULLOUS [None]
  - ECZEMA [None]
  - EXTRAVASATION [None]
  - IATROGENIC INJURY [None]
  - INFUSION RELATED REACTION [None]
  - INFUSION SITE BURNING [None]
  - INFUSION SITE ERYTHEMA [None]
  - INFUSION SITE RASH [None]
  - INFUSION SITE SWELLING [None]
  - JOINT SWELLING [None]
  - MEDICATION ERROR [None]
  - OEDEMA PERIPHERAL [None]
  - RASH PUSTULAR [None]
  - SKIN DISCOLOURATION [None]
  - SUNBURN [None]
  - THERMAL BURN [None]
  - URTICARIA [None]
  - VISUAL ACUITY REDUCED [None]
